FAERS Safety Report 5088696-5 (Version None)
Quarter: 2006Q3

REPORT INFORMATION
  Report Type: 
  Country: None (occurrence: None)
  Receive Date: 20060822
  Receipt Date: 20060810
  Transmission Date: 20061208
  Serious: No
  Sender: FDA-Public Use
  Company Number: AU200608003131

PATIENT
  Age: 22 Year
  Sex: Male

DRUGS (1)
  1. ZYPREXA [Suspect]
     Indication: BIPOLAR DISORDER
     Dosage: 15 MG
     Dates: start: 20060501

REACTIONS (1)
  - EPISTAXIS [None]
